FAERS Safety Report 8906078 (Version 3)
Quarter: 2012Q4

REPORT INFORMATION
  Report Type: 
  Country: US (occurrence: US)
  Receive Date: 20121112
  Receipt Date: 20121127
  Transmission Date: 20130627
  Serious: Yes (Hospitalization)
  Sender: FDA-Public Use
  Company Number: US-PFIZER INC-2012278522

PATIENT
  Age: 79 Year
  Sex: Female
  Weight: 65.3 kg

DRUGS (3)
  1. PROTONIX [Suspect]
     Dosage: UNK
  2. LIPITOR [Suspect]
     Indication: HIGH CHOLESTEROL
     Dosage: UNK
  3. DIOVAN (VALSARTAN) [Suspect]
     Indication: BLOOD PRESSURE HIGH
     Dosage: 160 mg, 1x/day
     Route: 048
     Dates: end: 20121027

REACTIONS (8)
  - Muscle spasms [Recovered/Resolved]
  - Palpitations [Recovered/Resolved]
  - Heart rate irregular [Recovered/Resolved]
  - Oropharyngeal pain [Recovered/Resolved]
  - Dysphonia [Recovered/Resolved]
  - Eye pain [Recovered/Resolved]
  - Nervousness [Unknown]
  - Vertigo [Unknown]
